FAERS Safety Report 12838031 (Version 1)
Quarter: 2016Q4

REPORT INFORMATION
  Report Type: Spontaneous
  Country: US (occurrence: US)
  Receive Date: 20161012
  Receipt Date: 20161012
  Transmission Date: 20170207
  Serious: No
  Sender: FDA-Public Use
  Company Number: US-BEH-2016074173

PATIENT
  Age: 65 Year
  Sex: Female
  Weight: 63.49 kg

DRUGS (4)
  1. MACRODANTIN [Concomitant]
     Active Substance: NITROFURANTOIN
  2. EPINEPHRINE. [Concomitant]
     Active Substance: EPINEPHRINE
  3. HIZENTRA [Suspect]
     Active Substance: HUMAN IMMUNOGLOBULIN G
     Indication: IMMUNODEFICIENCY COMMON VARIABLE
     Dosage: 8 G, EVERY WEEK
     Route: 058
     Dates: start: 20150810
  4. LIDOCAINE W/PRILOCAINE [Concomitant]

REACTIONS (2)
  - Infusion site vesicles [Unknown]
  - Nasopharyngitis [Unknown]
